FAERS Safety Report 9644719 (Version 1)
Quarter: 2013Q4

REPORT INFORMATION
  Report Type: Report from Study
  Country: US (occurrence: US)
  Receive Date: 20131025
  Receipt Date: 20131025
  Transmission Date: 20140711
  Serious: Yes (Death, Other)
  Sender: FDA-Public Use
  Company Number: PHEH2013US022297

PATIENT
  Age: 80 Year
  Sex: Male

DRUGS (2)
  1. TOBI [Suspect]
     Indication: BRONCHIECTASIS
     Dosage: 300/5 MG/ML, BID
  2. TOBI [Suspect]
     Indication: OBSTRUCTIVE AIRWAYS DISORDER

REACTIONS (3)
  - Death [Fatal]
  - Chronic obstructive pulmonary disease [Unknown]
  - Pseudomonas infection [Unknown]
